FAERS Safety Report 23347346 (Version 4)
Quarter: 2024Q1

REPORT INFORMATION
  Report Type: Spontaneous
  Country: US (occurrence: US)
  Receive Date: 20231228
  Receipt Date: 20240301
  Transmission Date: 20240410
  Serious: No
  Sender: FDA-Public Use
  Company Number: US-Blueprint Medicines Corporation-1863

PATIENT
  Sex: Female

DRUGS (2)
  1. AYVAKIT [Suspect]
     Active Substance: AVAPRITINIB
     Indication: Gastrointestinal stromal tumour
     Route: 048
     Dates: start: 20231109
  2. AYVAKIT [Suspect]
     Active Substance: AVAPRITINIB
     Route: 065
     Dates: start: 20231109

REACTIONS (14)
  - Adverse drug reaction [Unknown]
  - Dysphonia [Unknown]
  - Dry throat [Unknown]
  - Eye swelling [Unknown]
  - Diarrhoea [Unknown]
  - Decreased appetite [Unknown]
  - Early satiety [Unknown]
  - Hepatic enzyme increased [Unknown]
  - Alopecia [Unknown]
  - Fatigue [Unknown]
  - Depressed mood [Unknown]
  - Abdominal discomfort [Unknown]
  - Chest discomfort [Unknown]
  - Wound [Unknown]
